FAERS Safety Report 19649237 (Version 2)
Quarter: 2021Q3

REPORT INFORMATION
  Report Type: Spontaneous
  Country: US (occurrence: US)
  Receive Date: 20210802
  Receipt Date: 20210812
  Transmission Date: 20211014
  Serious: No
  Sender: FDA-Public Use
  Company Number: US-AMGEN-USASP2021117530

PATIENT
  Age: 22 Year
  Sex: Female

DRUGS (2)
  1. REPATHA [Suspect]
     Active Substance: EVOLOCUMAB
     Indication: TYPE IIA HYPERLIPIDAEMIA
     Dosage: UNK
     Route: 065
     Dates: start: 20210727
  2. ROSUVASTATIN. [Concomitant]
     Active Substance: ROSUVASTATIN
     Dosage: UNK

REACTIONS (1)
  - Urticaria [Not Recovered/Not Resolved]

NARRATIVE: CASE EVENT DATE: 20210727
